FAERS Safety Report 6530498-4 (Version None)
Quarter: 2010Q1

REPORT INFORMATION
  Report Type: 
  Country: None (occurrence: None)
  Receive Date: 20100107
  Receipt Date: 20091228
  Transmission Date: 20100710
  Serious: Yes (Hospitalization)
  Sender: FDA-Public Use
  Company Number: FR-ELI_LILLY_AND_COMPANY-FR200911000572

PATIENT
  Sex: Male
  Weight: 70 kg

DRUGS (9)
  1. HUMALOG [Suspect]
     Indication: TYPE 1 DIABETES MELLITUS
     Dosage: 6 IU, EACH MORNING
     Route: 058
     Dates: start: 20091001
  2. HUMALOG [Suspect]
     Dosage: 10 IU, EACH EVENING
     Route: 058
     Dates: start: 20091001
  3. HUMALOG [Suspect]
     Dosage: 40 IU, OTHER
     Route: 058
     Dates: start: 20091001, end: 20091001
  4. HUMALOG [Concomitant]
     Dosage: 10 IU, AT MIDDAY
     Route: 058
  5. HUMALOG MIX /SPA/ [Concomitant]
     Indication: TYPE 1 DIABETES MELLITUS
     Dosage: 10 IU, OTHER
     Route: 058
  6. LEVEMIR [Concomitant]
     Indication: TYPE 1 DIABETES MELLITUS
     Dosage: 8 IU, EACH EVENING
     Route: 058
  7. BIPRETERAX [Concomitant]
     Indication: HYPERTENSION
     Dosage: 1 D/F, DAILY (1/D)
     Route: 048
  8. KARDEGIC [Concomitant]
     Indication: ARTERIAL DISORDER
     Dosage: 75 MG, DAILY (1/D)
     Route: 048
  9. COVERSYL [Concomitant]

REACTIONS (4)
  - DRUG INEFFECTIVE [None]
  - HYPERGLYCAEMIA [None]
  - KETOACIDOSIS [None]
  - OEDEMA PERIPHERAL [None]
